FAERS Safety Report 4803307-9 (Version None)
Quarter: 2005Q4

REPORT INFORMATION
  Report Type: 
  Country: None (occurrence: None)
  Receive Date: 20051013
  Receipt Date: 20020812
  Transmission Date: 20060501
  Serious: Yes (Other)
  Sender: FDA-Public Use
  Company Number: 055-02

PATIENT
  Age: 85 Year
  Sex: Female
  Weight: 51.7101 kg

DRUGS (5)
  1. AMIODARONE HCL [Suspect]
     Indication: ATRIAL FIBRILLATION
     Dosage: 400 MG QD; PO
     Route: 048
     Dates: start: 20020401, end: 20020401
  2. TENORMIN [Concomitant]
  3. VASOTEC [Concomitant]
  4. ISORDIL [Concomitant]
  5. COUMADIN [Concomitant]

REACTIONS (3)
  - FALL [None]
  - HIP FRACTURE [None]
  - TREMOR [None]
